FAERS Safety Report 9105809 (Version 1)
Quarter: 2013Q1

REPORT INFORMATION
  Report Type: Spontaneous
  Country: US (occurrence: US)
  Receive Date: 20130220
  Receipt Date: 20130220
  Transmission Date: 20140127
  Serious: No
  Sender: FDA-Public Use
  Company Number: US-009507513-1302USA008545

PATIENT
  Sex: Female

DRUGS (3)
  1. REMERON [Suspect]
     Dosage: UNK
     Route: 048
     Dates: start: 20121211
  2. REMERON [Suspect]
     Dosage: UNK
     Route: 048
     Dates: start: 201301
  3. REMERON [Suspect]
     Dosage: UNK
     Route: 048
     Dates: start: 201302

REACTIONS (1)
  - Feeling abnormal [Unknown]
